FAERS Safety Report 16631057 (Version 1)
Quarter: 2019Q3

REPORT INFORMATION
  Report Type: Spontaneous
  Country: DE (occurrence: DE)
  Receive Date: 20190725
  Receipt Date: 20190725
  Transmission Date: 20191004
  Serious: Yes (Life-Threatening, Hospitalization, Other)
  Sender: FDA-Public Use
  Company Number: DE-AUROBINDO-AUR-APL-2019-043152

PATIENT

DRUGS (6)
  1. CANDESARTAN TABLETS [Suspect]
     Active Substance: CANDESARTAN
     Indication: HYPERTENSION
     Dosage: 16 MILLIGRAM
     Route: 065
  2. TAMSULOSIN 1A PHARMA [Suspect]
     Active Substance: TAMSULOSIN
     Indication: HYPERTENSION
     Dosage: UNK
     Route: 065
  3. TAMSULOSIN 1A PHARMA [Suspect]
     Active Substance: TAMSULOSIN
     Indication: MICTURITION DISORDER
     Dosage: 1 DOSAGE FORM, DAILY
     Route: 065
     Dates: start: 20180801, end: 20190310
  4. BISOPROLOL [Suspect]
     Active Substance: BISOPROLOL
     Indication: HYPERTENSION
     Dosage: UNK
     Route: 065
  5. ASPIRIN. [Concomitant]
     Active Substance: ASPIRIN
     Indication: OROPHARYNGEAL PLAQUE
     Dosage: UNK
     Route: 065
  6. SIMVABETA [Concomitant]
     Active Substance: SIMVASTATIN
     Indication: BLOOD CHOLESTEROL INCREASED
     Dosage: 20 MILLIGRAM
     Route: 065

REACTIONS (12)
  - Urinary tract disorder [Unknown]
  - Condition aggravated [Unknown]
  - Cardiac failure [Unknown]
  - Prostatomegaly [Unknown]
  - Spermatozoa abnormal [Unknown]
  - Product prescribing error [Unknown]
  - Defaecation disorder [Unknown]
  - Weight increased [Recovered/Resolved with Sequelae]
  - Constipation [Recovered/Resolved]
  - Oedema peripheral [Recovered/Resolved]
  - Micturition disorder [Unknown]
  - Neoplasm malignant [Unknown]

NARRATIVE: CASE EVENT DATE: 201812
